FAERS Safety Report 9436664 (Version 1)
Quarter: 2013Q3

REPORT INFORMATION
  Report Type: Spontaneous
  Country: US (occurrence: US)
  Receive Date: 20130802
  Receipt Date: 20130802
  Transmission Date: 20140515
  Serious: No
  Sender: FDA-Public Use
  Company Number: US-BAYER-2013-093296

PATIENT
  Sex: Female
  Weight: 63 kg

DRUGS (7)
  1. BETASERON [Suspect]
     Dosage: 0.3 MG, UNK
  2. ALLEGRA [Concomitant]
     Dosage: 30 MG, UNK
  3. PRAVASTATIN [Concomitant]
     Dosage: 10 MG, UNK
  4. FISH OIL [Concomitant]
  5. VITAMIN B COMPLEX [Concomitant]
  6. CALCIUM D [Concomitant]
  7. VALACICLOVIR [Concomitant]
     Dosage: 500 MG, UNK

REACTIONS (1)
  - Injection site reaction [Unknown]
